FAERS Safety Report 18243892 (Version 2)
Quarter: 2020Q3

REPORT INFORMATION
  Report Type: Report from Study
  Country: AR (occurrence: AR)
  Receive Date: 20200908
  Receipt Date: 20200923
  Transmission Date: 20201103
  Serious: Yes (Hospitalization)
  Sender: FDA-Public Use
  Company Number: NVSC2020AR244633

PATIENT
  Age: 59 Year
  Sex: Male

DRUGS (1)
  1. EXFORGE [Suspect]
     Active Substance: AMLODIPINE BESYLATE\VALSARTAN
     Indication: HYPERTENSION
     Dosage: 1 DF 1 X 160/10, QD STARTED 4 YEARS AGO AND STOPPED BEGINING OF AUG 2020
     Route: 065
     Dates: start: 202008, end: 202008

REACTIONS (15)
  - Cardiac disorder [Recovered/Resolved]
  - Pneumonia [Recovered/Resolved]
  - Blood potassium decreased [Recovered/Resolved]
  - Lung disorder [Recovered/Resolved]
  - Cough [Unknown]
  - Chest discomfort [Unknown]
  - Arrhythmia [Recovering/Resolving]
  - Feeling abnormal [Unknown]
  - Cardiac failure [Recovering/Resolving]
  - Fatigue [Unknown]
  - Cardiomegaly [Unknown]
  - Hypertension [Recovered/Resolved]
  - Atrioventricular block [Unknown]
  - Dyspnoea [Unknown]
  - Peripheral swelling [Unknown]

NARRATIVE: CASE EVENT DATE: 202003
